FAERS Safety Report 7509085-7 (Version None)
Quarter: 2011Q2

REPORT INFORMATION
  Report Type: 
  Country: None (occurrence: None)
  Receive Date: 20110527
  Receipt Date: 20110524
  Transmission Date: 20111010
  Serious: No
  Sender: FDA-Public Use
  Company Number: US-PFIZER INC-2011111978

PATIENT
  Sex: Male

DRUGS (2)
  1. ADVIL ALLERGY SINUS [Suspect]
     Indication: SINUS DISORDER
     Dosage: 200 MG, UNK
     Route: 048
     Dates: start: 20110501
  2. ADVIL ALLERGY SINUS [Suspect]
     Indication: HEADACHE

REACTIONS (1)
  - BLOOD GLUCOSE INCREASED [None]
